FAERS Safety Report 6138294-7 (Version None)
Quarter: 2009Q1

REPORT INFORMATION
  Report Type: 
  Country: None (occurrence: None)
  Receive Date: 20090327
  Receipt Date: 20090310
  Transmission Date: 20090719
  Serious: Yes (Death)
  Sender: FDA-Public Use
  Company Number: APP200900130

PATIENT
  Age: 48 Year
  Sex: Female

DRUGS (4)
  1. DOXORUBICIN HCL [Suspect]
     Indication: CHEMOTHERAPY
     Dosage: ONCE, INTRAPLEURAL
     Route: 034
     Dates: start: 20060301, end: 20060301
  2. MITOMYCIN [Suspect]
     Indication: CHEMOTHERAPY
     Dosage: ONCE, INTRAPLEURAL
     Route: 034
     Dates: start: 20060301, end: 20060301
  3. FLUOROURACIL [Suspect]
     Indication: CHEMOTHERAPY
     Dosage: ONCE, INTRAVENOUS
     Route: 042
     Dates: start: 20060301, end: 20060301
  4. LEUCOVORIN CALCIUM [Suspect]
     Indication: CHEMOTHERAPY
     Dosage: ONCE, INTRAVENOUS
     Route: 042
     Dates: start: 20060301, end: 20060301

REACTIONS (9)
  - DISEASE PROGRESSION [None]
  - DYSPNOEA AT REST [None]
  - INTERSTITIAL LUNG DISEASE [None]
  - INTESTINAL OBSTRUCTION [None]
  - LUNG INFECTION [None]
  - NO THERAPEUTIC RESPONSE [None]
  - OBSTRUCTION GASTRIC [None]
  - SEPSIS [None]
  - TUMOUR INVASION [None]
